FAERS Safety Report 5362169-4 (Version None)
Quarter: 2007Q2

REPORT INFORMATION
  Report Type: 
  Country: None (occurrence: None)
  Receive Date: 20070619
  Receipt Date: 20070612
  Transmission Date: 20071010
  Serious: Yes (Other)
  Sender: FDA-Public Use
  Company Number: US-ROCHE-498031

PATIENT
  Age: 41 Year
  Sex: Female
  Weight: 77.1 kg

DRUGS (5)
  1. PEGASYS [Suspect]
     Route: 058
     Dates: start: 20070202, end: 20070522
  2. COPEGUS [Suspect]
     Route: 048
     Dates: start: 20070202, end: 20070412
  3. COPEGUS [Suspect]
     Route: 048
     Dates: start: 20070412, end: 20070522
  4. TRICOR [Concomitant]
     Route: 048
  5. ORAL CONTRACEPTION [Concomitant]
     Route: 048

REACTIONS (2)
  - MOUTH ULCERATION [None]
  - RASH [None]
